FAERS Safety Report 6265659-5 (Version None)
Quarter: 2009Q3

REPORT INFORMATION
  Report Type: 
  Country: None (occurrence: None)
  Receive Date: 20090709
  Receipt Date: 20090709
  Transmission Date: 20100115
  Serious: Yes (Other)
  Sender: FDA-Public Use
  Company Number: None

PATIENT
  Age: 11 Year
  Sex: Female
  Weight: 45.3597 kg

DRUGS (1)
  1. CARBOCAINE [Suspect]

REACTIONS (5)
  - DYSPNOEA [None]
  - FEELING HOT [None]
  - HYPOTENSION [None]
  - NAUSEA [None]
  - VOMITING [None]
